FAERS Safety Report 17806258 (Version 1)
Quarter: 2020Q2

REPORT INFORMATION
  Report Type: Spontaneous
  Country: US (occurrence: US)
  Receive Date: 20200519
  Receipt Date: 20200519
  Transmission Date: 20200714
  Serious: Yes (Hospitalization)
  Sender: FDA-Public Use
  Company Number: None

PATIENT
  Age: 71 Year
  Sex: Female

DRUGS (25)
  1. PAROXETINE. [Concomitant]
     Active Substance: PAROXETINE
  2. TRAMADOL HCL [Concomitant]
     Active Substance: TRAMADOL HYDROCHLORIDE
  3. ATORVASTATIN [Concomitant]
     Active Substance: ATORVASTATIN
  4. DIPHEN/ATROP [Concomitant]
     Active Substance: ATROPINE SULFATE\DIPHENOXYLATE
  5. LIDO/PRILOCN [Concomitant]
  6. METOPROLOL TAR [Concomitant]
     Active Substance: METOPROLOL TARTRATE
  7. ONDANSERTRON [Concomitant]
  8. PRASUGREL. [Concomitant]
     Active Substance: PRASUGREL
  9. HYDROCO/APAP [Concomitant]
     Active Substance: ACETAMINOPHEN\HYDROCODONE
  10. JANUVIA [Concomitant]
     Active Substance: SITAGLIPTIN PHOSPHATE
  11. MIRTAZAPINE. [Concomitant]
     Active Substance: MIRTAZAPINE
  12. OMEPRAZOLE. [Concomitant]
     Active Substance: OMEPRAZOLE
  13. CAPECITABINE 500MG TAB [Suspect]
     Active Substance: CAPECITABINE
     Indication: NEOPLASM MALIGNANT
     Route: 048
     Dates: start: 20200208
  14. BUDESONIDE. [Concomitant]
     Active Substance: BUDESONIDE
  15. DEXAMETHASON [Concomitant]
     Active Substance: DEXAMETHASONE
  16. FARXIGA [Concomitant]
     Active Substance: DAPAGLIFLOZIN PROPANEDIOL
  17. OLM MED/HCTZ [Concomitant]
  18. PROCHLORPER [Concomitant]
  19. SMZ/TMP DS [Concomitant]
     Active Substance: SULFAMETHOXAZOLE\TRIMETHOPRIM
  20. LEVETIRACETA [Concomitant]
  21. VIMPAT [Concomitant]
     Active Substance: LACOSAMIDE
  22. ASPIRIN. [Concomitant]
     Active Substance: ASPIRIN
  23. LEVOTHYROXIN [Concomitant]
     Active Substance: LEVOTHYROXINE
  24. MAG OXIDE [Concomitant]
     Active Substance: MAGNESIUM OXIDE
  25. METFORMIN [Concomitant]
     Active Substance: METFORMIN HYDROCHLORIDE

REACTIONS (1)
  - Hospitalisation [None]

NARRATIVE: CASE EVENT DATE: 20200514
